FAERS Safety Report 8155596-3 (Version None)
Quarter: 2012Q1

REPORT INFORMATION
  Report Type: 
  Country: None (occurrence: None)
  Receive Date: 20120222
  Receipt Date: 20120217
  Transmission Date: 20120608
  Serious: Yes (Other)
  Sender: FDA-Public Use
  Company Number: US-PFIZER INC-2012043618

PATIENT
  Sex: Female
  Weight: 83.9 kg

DRUGS (11)
  1. CALCIUM [Concomitant]
     Indication: SUPPLEMENTATION THERAPY
     Dosage: UNK
  2. FISH OIL [Concomitant]
     Indication: SUPPLEMENTATION THERAPY
     Dosage: UNK
  3. HYDROCODONE BITARTRATE [Suspect]
     Indication: PAIN
     Dosage: UNK
  4. PREMARIN [Concomitant]
     Dosage: 0.625 MG, DAILY
  5. LYRICA [Concomitant]
     Indication: FIBROMYALGIA
     Dosage: 75 MG, DAILY
  6. EFFEXOR [Suspect]
     Indication: DEPRESSION
     Dosage: 100 MG, DAILY
     Dates: start: 20120208, end: 20120210
  7. LISINOPRIL [Concomitant]
     Indication: HYPERTENSION
     Dosage: 10 MG, DAILY
  8. CARBAMAZEPINE [Concomitant]
     Indication: DEPRESSION
     Dosage: 3X200MG DAILY
  9. MULTI-VITAMINS [Concomitant]
     Indication: SUPPLEMENTATION THERAPY
     Dosage: UNK
  10. PRISTIQ [Suspect]
     Indication: DEPRESSION
     Dosage: 100 MG, DAILY
     Dates: start: 20120210
  11. LEVOTHYROXINE SODIUM [Concomitant]
     Dosage: 88 UG, DAILY

REACTIONS (2)
  - AGITATION [None]
  - MANIA [None]
